FAERS Safety Report 18540371 (Version 1)
Quarter: 2020Q4

REPORT INFORMATION
  Report Type: Spontaneous
  Country: US (occurrence: US)
  Receive Date: 20201124
  Receipt Date: 20201124
  Transmission Date: 20210114
  Serious: Yes (Other)
  Sender: FDA-Public Use
  Company Number: US-ALVOGEN-2020-ALVOGEN-115251

PATIENT
  Age: 67 Year
  Sex: Female

DRUGS (2)
  1. VORICONAZOLE. [Suspect]
     Active Substance: VORICONAZOLE
     Indication: CUTANEOUS BLASTOMYCOSIS
     Route: 048
  2. FLUTICASONE. [Concomitant]
     Active Substance: FLUTICASONE
     Indication: RHINITIS ALLERGIC

REACTIONS (4)
  - Dysaesthesia [Unknown]
  - Nausea [Unknown]
  - Rosacea [Unknown]
  - Hypoaesthesia [Unknown]
